FAERS Safety Report 7656805-7 (Version None)
Quarter: 2011Q3

REPORT INFORMATION
  Report Type: 
  Country: None (occurrence: None)
  Receive Date: 20110802
  Receipt Date: 20110719
  Transmission Date: 20111222
  Serious: Yes (Other)
  Sender: FDA-Public Use
  Company Number: FK201101422

PATIENT
  Age: 10 Year
  Sex: Female
  Weight: 36 kg

DRUGS (7)
  1. ETANERCEPT (ETANERCEPT) [Concomitant]
  2. ANAKINRA (ANAKINRA) [Suspect]
     Indication: PROPHYLAXIS
     Dosage: 100 MG, DAILY, SUBCUTANEOUS
     Route: 058
  3. INFLIXIMAB (INFLIXIMAB) [Suspect]
     Indication: PROPHYLAXIS
  4. IMMUNE GLOBULIN (HUMAN) [Suspect]
     Indication: PROPHYLAXIS
     Dosage: 2 GM, PER KG X 3 MONTHS, INTRAVENOUS
     Route: 042
  5. METHYLPREDNISOLONE [Suspect]
     Indication: STEROID THERAPY
     Dosage: 1 GM, PER D X 3 DAYS, INTRAVENOUS, INTRAVENOUS
     Route: 042
  6. PREDNISONE [Concomitant]
  7. METHOTREXATE [Concomitant]

REACTIONS (1)
  - EPIDURAL LIPOMATOSIS [None]
